FAERS Safety Report 14931214 (Version 1)
Quarter: 2018Q2

REPORT INFORMATION
  Report Type: Spontaneous
  Country: GB (occurrence: GB)
  Receive Date: 20180524
  Receipt Date: 20180524
  Transmission Date: 20180711
  Serious: Yes (Disabling)
  Sender: FDA-Public Use
  Company Number: GB-TEVA-2018-GB-897222

PATIENT
  Age: 32 Year
  Sex: Female
  Weight: 62 kg

DRUGS (4)
  1. CODEINE PHOSPHATE [Concomitant]
     Active Substance: CODEINE PHOSPHATE
     Dosage: TAKE ONE OR TWO UP TO 4 TIMES/DAY
     Dates: start: 20170710
  2. GEDAREL [Concomitant]
     Dosage: 1 DOSAGE FORMS DAILY; FOR 21 DAYS.
     Dates: start: 20180110
  3. DIAZEPAM. [Concomitant]
     Active Substance: DIAZEPAM
     Dates: start: 20180314
  4. NORTRIPTYLINE [Suspect]
     Active Substance: NORTRIPTYLINE
     Indication: FACIAL PAIN
     Dates: start: 20180319

REACTIONS (4)
  - Euphoric mood [Unknown]
  - Disturbance in attention [Unknown]
  - Ideas of reference [Recovering/Resolving]
  - Hallucination, visual [Unknown]

NARRATIVE: CASE EVENT DATE: 20180319
